FAERS Safety Report 20237272 (Version 1)
Quarter: 2021Q4

REPORT INFORMATION
  Report Type: Spontaneous
  Country: US (occurrence: None)
  Receive Date: 20211227
  Receipt Date: 20211227
  Transmission Date: 20220303
  Serious: Yes (Disabling)
  Sender: FDA-Public Use
  Company Number: None

PATIENT
  Age: 21 Year
  Sex: Female
  Weight: 60.3 kg

DRUGS (1)
  1. LYRICA [Suspect]
     Active Substance: PREGABALIN
     Indication: Epilepsy
     Dates: start: 20201128, end: 20201219

REACTIONS (18)
  - Dizziness [None]
  - Limb discomfort [None]
  - Feeling drunk [None]
  - Poisoning [None]
  - Malaise [None]
  - Altered state of consciousness [None]
  - Photophobia [None]
  - Heart rate irregular [None]
  - Autonomic nervous system imbalance [None]
  - Anxiety [None]
  - Depressed level of consciousness [None]
  - Depression [None]
  - Insomnia [None]
  - Panic attack [None]
  - Anger [None]
  - Fatigue [None]
  - Aphasia [None]
  - Noninfective encephalitis [None]

NARRATIVE: CASE EVENT DATE: 20201129
